FAERS Safety Report 4638206-9 (Version None)
Quarter: 2005Q2

REPORT INFORMATION
  Report Type: 
  Country: None (occurrence: None)
  Receive Date: 20050418
  Receipt Date: 20050216
  Transmission Date: 20051028
  Serious: Yes (Disabling)
  Sender: FDA-Public Use
  Company Number: US-ABBOTT-05P-163-0290876-00

PATIENT
  Sex: Female
  Weight: 104.5 kg

DRUGS (6)
  1. DEPAKOTE [Suspect]
     Indication: MANIA
     Route: 048
     Dates: start: 20010701
  2. DEPAKOTE [Suspect]
  3. LORAZEPAM [Concomitant]
     Indication: AGITATION
     Route: 048
  4. QUETIAPINE [Concomitant]
     Indication: DEPRESSION
     Route: 048
  5. IBUPROFEN [Concomitant]
     Indication: PAIN
     Route: 048
     Dates: start: 20050101
  6. LEVOTHYROXINE SODIUM [Concomitant]
     Indication: HYPOTHYROIDISM

REACTIONS (5)
  - ARTHRALGIA [None]
  - BLOOD CORTISOL DECREASED [None]
  - GAIT DISTURBANCE [None]
  - OEDEMA PERIPHERAL [None]
  - STRESS [None]
